FAERS Safety Report 25977630 (Version 1)
Quarter: 2025Q4

REPORT INFORMATION
  Report Type: Spontaneous
  Country: GB (occurrence: GB)
  Receive Date: 20251030
  Receipt Date: 20251030
  Transmission Date: 20260118
  Serious: Yes (Hospitalization, Other)
  Sender: EMD SERONO INC
  Company Number: None

PATIENT
  Age: 84 Year
  Sex: Male

DRUGS (17)
  1. METFORMIN [Suspect]
     Active Substance: METFORMIN HYDROCHLORIDE
     Indication: Product used for unknown indication
  2. ENOXAPARIN [Concomitant]
     Active Substance: ENOXAPARIN
     Indication: Haematuria
     Dosage: 80 MG/0.8 ML SOLUTION FOR INJECTION PRE-FILLED SYRINGES 80 MG TWICE A DAY AT 9 AM AND 9 PM
  3. CHOLECALCIFEROL [Concomitant]
     Active Substance: CHOLECALCIFEROL
     Indication: Product used for unknown indication
     Dosage: 800 UNIT CAPSULES ONE TO BE TAKEN EACH MORNING
  4. SIMVASTATIN [Concomitant]
     Active Substance: SIMVASTATIN
     Indication: Product used for unknown indication
     Dosage: 20 MG TABLETS ONE TO BE TAKEN AT NIGHT
  5. NICORANDIL [Concomitant]
     Active Substance: NICORANDIL
     Indication: Skin wound
     Dosage: 20 MG TABLET 1 TO BE TAKEN 2 A DAY, REDUCE TO 10MG BD WITH AIM TO STOP (CHRONIC SKIN WOUNDS)
  6. NICORANDIL [Concomitant]
     Active Substance: NICORANDIL
     Dosage: 20 MG TABLETS 1 TO BE TAKEN 2 A DAY - REDUCE TO 10MG BD WITH AIM TO STOP (CHRONIC SKIN WOUNDS)
  7. BISOPROLOL [Concomitant]
     Active Substance: BISOPROLOL
     Indication: Product used for unknown indication
     Dosage: 5 MG TABLETS ONE TO BE TAKEN EACH DAY
  8. RANOLAZINE [Concomitant]
     Active Substance: RANOLAZINE
     Indication: Product used for unknown indication
     Dosage: 375 MG MODIFIED-RELEASE TABLETS ONE TO BE TAKEN TWICE A DAY
  9. MIRTAZAPINE [Concomitant]
     Active Substance: MIRTAZAPINE
     Indication: Product used for unknown indication
     Dosage: 15 MG TABLETS ONE TO BE TAKEN AT NIGHT
  10. FAMOTIDINE [Concomitant]
     Active Substance: FAMOTIDINE
     Indication: Product used for unknown indication
     Dosage: 20 MG TABLETS ONE TO BE TAKEN IN THE MORNING
  11. DOXAZOSIN [Concomitant]
     Active Substance: DOXAZOSIN MESYLATE
     Indication: Product used for unknown indication
     Dosage: 2 MG TABLETS ONE TO BE TAKEN EACH DAY
  12. DOCUSATE [Concomitant]
     Active Substance: DOCUSATE
     Indication: Constipation
     Dosage: 100 MG CAPSULES ONE OR 2 TO BE TAKEN IN THE MORNING AND AT NIGHT WHEN REQUIRED FOR CONSTIPATION
  13. ISOSORBIDE MONONITRATE [Concomitant]
     Active Substance: ISOSORBIDE MONONITRATE
     Indication: Product used for unknown indication
     Dosage: 60 MG TABLETS ONE TO BE TAKEN EACH MORNING
  14. 3M CAVILON ANTIFUNGAL [Concomitant]
     Active Substance: MICONAZOLE NITRATE
     Indication: Product used for unknown indication
     Dosage: CREAM APPLY TO THE AFFECTED AREAS WHEN REQUIRED AUTHORISED (NOT YET ISSUED) 15-JUL-2025
  15. POLYETHYLENE GLYCOLS [Concomitant]
     Active Substance: POLYETHYLENE GLYCOLS
     Indication: Constipation
     Dosage: ORAL POWDER SACHETS NPF SUGAR FREE 1 SACHET TO BE TAKEN 2 A DAY WHEN REQUIRED FOR CONSTIPATION
  16. ACETAMINOPHEN [Concomitant]
     Active Substance: ACETAMINOPHEN
     Indication: Pain
     Dosage: 500 MG TABLETS ONE OR TWO TO BE TAKEN FOUR TIMES A DAY WHEN REQUIRED FOR PAIN
  17. SENNOSIDES A AND B [Concomitant]
     Active Substance: SENNOSIDES A AND B
     Indication: Constipation
     Dosage: 7.5 MG TABLETS 2 TO BE TAKEN AT NIGHT WHEN RERQUIRED FOR CONSTIPATION

REACTIONS (2)
  - Kidney infection [Unknown]
  - Lactic acidosis [Unknown]
